FAERS Safety Report 8620363-0 (Version None)
Quarter: 2012Q3

REPORT INFORMATION
  Report Type: 
  Country: None (occurrence: None)
  Receive Date: 20120824
  Receipt Date: 20120817
  Transmission Date: 20120928
  Serious: Yes (Other)
  Sender: FDA-Public Use
  Company Number: US-GLAXOSMITHKLINE-A0983220A

PATIENT
  Age: 60 Year
  Sex: Female

DRUGS (6)
  1. LUNESTA [Concomitant]
  2. LIPITOR [Concomitant]
  3. HYZAAR [Concomitant]
  4. NYSTATIN [Concomitant]
  5. HYDROXYUREA [Concomitant]
  6. FLUTICASONE PROPIONATE [Suspect]
     Indication: ASTHMA
     Dosage: 1PUFF TWICE PER DAY
     Route: 055
     Dates: start: 20110101

REACTIONS (2)
  - ASTHMA [None]
  - PRODUCT QUALITY ISSUE [None]
